FAERS Safety Report 25920602 (Version 1)
Quarter: 2025Q4

REPORT INFORMATION
  Report Type: Spontaneous
  Country: US (occurrence: US)
  Receive Date: 20251014
  Receipt Date: 20251014
  Transmission Date: 20260118
  Serious: No
  Sender: FENNEC PHARMACEUTICALS
  Company Number: US-FENNEC PHARMACEUTICALS, INC.-2025FEN00096

PATIENT
  Age: 48 Year
  Sex: Male

DRUGS (2)
  1. PEDMARK [Suspect]
     Active Substance: SODIUM THIOSULFATE
     Dosage: 40 GRAMS (20 GM/M2) OVER 45 MINUTES/4 VIALS PER INFUSION
     Route: 042
     Dates: start: 20250917
  2. PEDMARK [Suspect]
     Active Substance: SODIUM THIOSULFATE
     Dosage: 40 GRAMS IV OVER 45 MINUTES/4 VIALS PER INFUSION
     Route: 042
     Dates: start: 20251008

REACTIONS (3)
  - Nausea [Unknown]
  - Vomiting [Unknown]
  - Off label use [Unknown]

NARRATIVE: CASE EVENT DATE: 20250917
